FAERS Safety Report 7157295-3 (Version None)
Quarter: 2010Q4

REPORT INFORMATION
  Report Type: 
  Country: None (occurrence: None)
  Receive Date: 20101214
  Receipt Date: 20101208
  Transmission Date: 20110411
  Serious: No
  Sender: FDA-Public Use
  Company Number: US-PFIZER INC-2010165327

PATIENT
  Sex: Female

DRUGS (1)
  1. ZOLOFT [Suspect]
     Indication: ABDOMINAL PAIN
     Dosage: 50 MG, 1X/DAY
     Route: 048
     Dates: start: 20100919, end: 20100101

REACTIONS (1)
  - MYDRIASIS [None]
